FAERS Safety Report 9274596 (Version 4)
Quarter: 2013Q3

REPORT INFORMATION
  Report Type: Spontaneous
  Country: US (occurrence: None)
  Receive Date: 20130429
  Receipt Date: 20130726
  Transmission Date: 20140515
  Serious: Yes (Hospitalization, Other)
  Sender: FDA-Public Use
  Company Number: ADR-2013-00716

PATIENT
  Age: 47 Year
  Sex: Male

DRUGS (7)
  1. BACLOFEN (UNKNOWN) [Suspect]
     Indication: PARKINSON^S DISEASE
  2. AMANTIDINE [Concomitant]
  3. CARBIDOPA-LEVODOPA [Concomitant]
  4. ENTACAPONE [Concomitant]
  5. SELEGILINE [Concomitant]
  6. ESCITALOPRAM [Concomitant]
  7. CARBONATE [Concomitant]

REACTIONS (16)
  - Muscle rigidity [None]
  - Dystonia [None]
  - Pain [None]
  - Drug effect decreased [None]
  - Anxiety [None]
  - Delusion [None]
  - Agitation [None]
  - Diet refusal [None]
  - Aggression [None]
  - Refusal of treatment by patient [None]
  - Psychotic disorder [None]
  - Hallucination [None]
  - Impulsive behaviour [None]
  - Abnormal dreams [None]
  - Paranoia [None]
  - Delusion [None]
